FAERS Safety Report 7202080-7 (Version None)
Quarter: 2010Q4

REPORT INFORMATION
  Report Type: 
  Country: None (occurrence: None)
  Receive Date: 20101216
  Receipt Date: 20101201
  Transmission Date: 20110411
  Serious: Yes (Other)
  Sender: FDA-Public Use
  Company Number: AUR-APL-2010-02988

PATIENT
  Age: 50 Year
  Sex: Male

DRUGS (5)
  1. SIMVASTATIN [Suspect]
  2. INFLIXIMAB [Suspect]
     Indication: PSORIATIC ARTHROPATHY
  3. METOPROLOL [Concomitant]
  4. AMLODIPINE [Concomitant]
  5. DOXYCYCLINE [Concomitant]

REACTIONS (10)
  - BLASTOMYCOSIS [None]
  - DECREASED APPETITE [None]
  - ESCHAR [None]
  - HYPOVOLAEMIA [None]
  - LEUKOCYTOSIS [None]
  - PNEUMOCYSTIS JIROVECI PNEUMONIA [None]
  - RENAL FAILURE ACUTE [None]
  - RHABDOMYOLYSIS [None]
  - SQUAMOUS CELL CARCINOMA [None]
  - WEIGHT DECREASED [None]
